FAERS Safety Report 22065675 (Version 1)
Quarter: 2023Q1

REPORT INFORMATION
  Report Type: Spontaneous
  Country: JP (occurrence: JP)
  Receive Date: 20230306
  Receipt Date: 20230306
  Transmission Date: 20230417
  Serious: Yes (Other)
  Sender: FDA-Public Use
  Company Number: JP-PFIZER INC-202300087972

PATIENT

DRUGS (1)
  1. SOLU-CORTEF [Suspect]
     Active Substance: HYDROCORTISONE SODIUM SUCCINATE
     Indication: Pituitary tumour
     Dosage: 200MG ONCE FOR 12 HOURS, 2X/DAY

REACTIONS (3)
  - Tumour haemorrhage [Unknown]
  - Inflammation [Unknown]
  - Off label use [Unknown]
